FAERS Safety Report 7712798-5 (Version None)
Quarter: 2011Q3

REPORT INFORMATION
  Report Type: 
  Country: None (occurrence: None)
  Receive Date: 20110826
  Receipt Date: 20110822
  Transmission Date: 20111222
  Serious: Yes (Hospitalization, Disabling, Other)
  Sender: FDA-Public Use
  Company Number: AU-GLAXOSMITHKLINE-B0734839A

PATIENT
  Sex: Female
  Weight: 53.6 kg

DRUGS (7)
  1. ATROVENT [Concomitant]
     Indication: ASTHMA
     Dates: start: 20100712
  2. VENTOLIN HFA [Concomitant]
     Indication: ASTHMA
  3. FLUTICASONE PROPIONATE [Suspect]
     Indication: ASTHMA
     Dosage: 1PUFF TWICE PER DAY
     Route: 055
     Dates: start: 20080421
  4. ALUSTAL [Concomitant]
     Indication: RHINITIS ALLERGIC
     Dates: start: 20110528
  5. NUELIN SR [Concomitant]
     Indication: ASTHMA
     Dosage: 200MG TWICE PER DAY
     Dates: start: 20100616
  6. SPIRIVA [Concomitant]
     Dates: start: 20110402
  7. PREDNISOLONE [Concomitant]
     Indication: ASTHMA
     Dosage: 25MG AS REQUIRED
     Dates: start: 20100717

REACTIONS (2)
  - ASTHMA [None]
  - DRUG INEFFECTIVE [None]
